FAERS Safety Report 14502287 (Version 1)
Quarter: 2018Q1

REPORT INFORMATION
  Report Type: Spontaneous
  Country: LU (occurrence: LU)
  Receive Date: 20180208
  Receipt Date: 20180208
  Transmission Date: 20180509
  Serious: Yes (Hospitalization, Other)
  Sender: FDA-Public Use
  Company Number: LU-VISTAPHARM, INC.-VER201801-000325

PATIENT
  Age: 51 Year
  Sex: Female

DRUGS (9)
  1. TOPIRAMATE. [Suspect]
     Active Substance: TOPIRAMATE
     Indication: EPILEPSY
  2. VALPROIC ACID. [Suspect]
     Active Substance: VALPROIC ACID
     Indication: EPILEPSY
  3. ENOXAPARIN [Concomitant]
     Active Substance: ENOXAPARIN
     Route: 058
  4. LORAZEPAM. [Concomitant]
     Active Substance: LORAZEPAM
     Indication: DISEASE RECURRENCE
  5. LORAZEPAM. [Concomitant]
     Active Substance: LORAZEPAM
     Indication: SEIZURE
  6. CITALOPRAM [Concomitant]
     Active Substance: CITALOPRAM HYDROBROMIDE
  7. TOPIRAMATE. [Suspect]
     Active Substance: TOPIRAMATE
     Dosage: TITRATED SLOWLY TO ESTABLISH A DAILY DOSE OF 100 MG
  8. TOPIRAMATE. [Suspect]
     Active Substance: TOPIRAMATE
  9. OMEPRAZOLE. [Concomitant]
     Active Substance: OMEPRAZOLE

REACTIONS (3)
  - Hepatic failure [Recovering/Resolving]
  - Encephalopathy [Recovering/Resolving]
  - Drug interaction [Recovering/Resolving]
